FAERS Safety Report 5034155-5 (Version None)
Quarter: 2006Q2

REPORT INFORMATION
  Report Type: 
  Country: None (occurrence: None)
  Receive Date: 20060626
  Receipt Date: 20060615
  Transmission Date: 20061013
  Serious: Yes (Hospitalization, Other)
  Sender: FDA-Public Use
  Company Number: US-JNJFOC-20060600646

PATIENT
  Sex: Male
  Weight: 88.45 kg

DRUGS (10)
  1. FENTANYL TRANSDERMAL SYSTEM [Suspect]
     Indication: PAIN
     Route: 062
  2. PERCOCET [Concomitant]
     Indication: PAIN
     Route: 048
  3. KLONOPIN [Concomitant]
     Indication: ANXIETY
     Dosage: 1 MG TABLET EVERY 8 HOURS AS NEEDED, ORAL
     Route: 048
  4. CYMBALTA [Concomitant]
     Indication: DEPRESSION
     Route: 048
  5. PROVENTIL [Concomitant]
     Indication: ASTHMA
     Dosage: TWO PUFFS EVERY 6 HOURS AS NEEDED
     Route: 055
  6. CONCERTA [Concomitant]
     Indication: ATTENTION DEFICIT/HYPERACTIVITY DISORDER
     Route: 048
  7. SYNTHROID [Concomitant]
     Indication: THYROID DISORDER
     Route: 048
  8. AMBIEN [Concomitant]
     Indication: SLEEP DISORDER THERAPY
     Dosage: 10 MG AS NEEDED, ORAL
     Route: 048
  9. COMBIVENT [Concomitant]
     Indication: ASTHMA
     Dosage: AS NEEDED, INHALATION
     Route: 055
  10. PROVENTIL [Concomitant]
     Route: 055

REACTIONS (3)
  - BIPOLAR DISORDER [None]
  - PHARMACEUTICAL PRODUCT COMPLAINT [None]
  - THERAPEUTIC RESPONSE DECREASED [None]
